FAERS Safety Report 7389955-3 (Version None)
Quarter: 2011Q1

REPORT INFORMATION
  Report Type: 
  Country: None (occurrence: None)
  Receive Date: 20110325
  Receipt Date: 20110316
  Transmission Date: 20110831
  Serious: Yes (Other)
  Sender: FDA-Public Use
  Company Number: US-001605

PATIENT
  Sex: Female
  Weight: 19.7 kg

DRUGS (7)
  1. FLONASE [Concomitant]
  2. NAGLAZYME [Suspect]
     Indication: MUCOPOLYSACCHARIDOSIS VI
     Dosage: (20 MG 1X/WEEK INTRAVENOUS DRIP)
     Route: 041
     Dates: start: 20060111
  3. FLOVENT [Concomitant]
  4. CLARITIN [Concomitant]
  5. ALBUTEROL [Concomitant]
  6. DIPHENHYDRAMINE [Concomitant]
  7. VASOTEC [Concomitant]

REACTIONS (1)
  - SPINAL COLUMN STENOSIS [None]
